FAERS Safety Report 14746476 (Version 3)
Quarter: 2018Q2

REPORT INFORMATION
  Report Type: Spontaneous
  Country: JP (occurrence: JP)
  Receive Date: 20180411
  Receipt Date: 20180625
  Transmission Date: 20180711
  Serious: Yes (Death, Hospitalization, Other)
  Sender: FDA-Public Use
  Company Number: JP-PFIZER INC-2018091593

PATIENT
  Age: 75 Year
  Sex: Female
  Weight: 61 kg

DRUGS (2)
  1. FASLODEX [Concomitant]
     Active Substance: FULVESTRANT
     Indication: INFLAMMATORY CARCINOMA OF THE BREAST
     Dosage: 500 MG, 1X/DAY
     Route: 030
     Dates: start: 20180205, end: 20180219
  2. IBRANCE [Suspect]
     Active Substance: PALBOCICLIB
     Indication: INFLAMMATORY CARCINOMA OF THE BREAST
     Dosage: 125 MG, ONCE DAILY
     Route: 048
     Dates: start: 20180205, end: 20180220

REACTIONS (4)
  - Conjunctivitis [Recovered/Resolved]
  - Neoplasm progression [Fatal]
  - Neutropenia [Recovered/Resolved]
  - Leukopenia [Recovered/Resolved]

NARRATIVE: CASE EVENT DATE: 20180216
